FAERS Safety Report 19512248 (Version 15)
Quarter: 2022Q4

REPORT INFORMATION
  Report Type: Spontaneous
  Country: US (occurrence: US)
  Receive Date: 20210709
  Receipt Date: 20221122
  Transmission Date: 20230113
  Serious: No
  Sender: FDA-Public Use
  Company Number: US-DSJP-DSU-2021-121277

PATIENT
  Age: 17 Year
  Sex: Female

DRUGS (13)
  1. TURALIO [Suspect]
     Active Substance: PEXIDARTINIB HYDROCHLORIDE
     Indication: Connective tissue neoplasm
     Dosage: 400 MG, BID
     Route: 048
     Dates: start: 202106
  2. TURALIO [Suspect]
     Active Substance: PEXIDARTINIB HYDROCHLORIDE
     Indication: Soft tissue neoplasm
     Dosage: 400 MG, BID
     Route: 048
     Dates: start: 20210626
  3. TURALIO [Suspect]
     Active Substance: PEXIDARTINIB HYDROCHLORIDE
     Indication: Giant cell tumour of tendon sheath
  4. DICLOFENAC [Concomitant]
     Active Substance: DICLOFENAC
     Indication: Headache
     Dosage: 100 MG, BID
     Route: 048
  5. HYDROXYZINE [Concomitant]
     Active Substance: HYDROXYZINE HYDROCHLORIDE
     Indication: Insomnia
     Dosage: 25 MG, QD
     Route: 048
  6. HYDROXYZINE [Concomitant]
     Active Substance: HYDROXYZINE HYDROCHLORIDE
     Indication: Migraine
  7. ONDANSETRON [Concomitant]
     Active Substance: ONDANSETRON
     Indication: Nausea
     Dosage: UNK
     Route: 048
  8. OXCARBAZEPINE [Concomitant]
     Active Substance: OXCARBAZEPINE
     Indication: Product used for unknown indication
     Dosage: 150 MG, QD
     Route: 048
  9. QUETIAPINE [Concomitant]
     Active Substance: QUETIAPINE
     Indication: Product used for unknown indication
     Dosage: 400 MG, QD
     Route: 048
  10. TOPIRAMATE [Concomitant]
     Active Substance: TOPIRAMATE
     Indication: Migraine
     Dosage: 50 MG, QD
     Route: 048
  11. TOPIRAMATE [Concomitant]
     Active Substance: TOPIRAMATE
     Dosage: 100 MG, QD
     Route: 048
  12. PROPRANOLOL HYDROCHLORIDE [Concomitant]
     Active Substance: PROPRANOLOL HYDROCHLORIDE
     Indication: Migraine
     Dosage: 60 MG, QD
     Route: 048
  13. SEROQUEL [Concomitant]
     Active Substance: QUETIAPINE FUMARATE
     Indication: Product used for unknown indication
     Dosage: 500 MG, QD
     Route: 048

REACTIONS (12)
  - Nausea [Recovered/Resolved]
  - Vomiting [Recovering/Resolving]
  - Abdominal discomfort [Recovered/Resolved]
  - Diarrhoea [Recovered/Resolved]
  - Hypersomnia [Recovered/Resolved]
  - Hair colour changes [Unknown]
  - Contusion [Unknown]
  - Musculoskeletal chest pain [Recovered/Resolved]
  - Muscle spasms [Not Recovered/Not Resolved]
  - Product dose omission issue [Recovered/Resolved]
  - Abdominal pain upper [Unknown]
  - Gastroenteritis [Unknown]

NARRATIVE: CASE EVENT DATE: 20210701
